FAERS Safety Report 24552592 (Version 1)
Quarter: 2024Q4

REPORT INFORMATION
  Report Type: Spontaneous
  Country: US (occurrence: US)
  Receive Date: 20241026
  Receipt Date: 20241026
  Transmission Date: 20250115
  Serious: Yes (Other)
  Sender: ALEXION PHARMACEUTICALS
  Company Number: US-AstraZeneca-CH-00722936A

PATIENT

DRUGS (16)
  1. FARXIGA [Suspect]
     Active Substance: DAPAGLIFLOZIN PROPANEDIOL
     Indication: Cardiac failure
  2. FARXIGA [Suspect]
     Active Substance: DAPAGLIFLOZIN PROPANEDIOL
  3. FARXIGA [Suspect]
     Active Substance: DAPAGLIFLOZIN PROPANEDIOL
  4. FARXIGA [Suspect]
     Active Substance: DAPAGLIFLOZIN PROPANEDIOL
  5. METOPROLOL [Suspect]
     Active Substance: METOPROLOL
     Dosage: UNK
  6. METOPROLOL [Suspect]
     Active Substance: METOPROLOL
     Dosage: UNK
  7. METOPROLOL [Suspect]
     Active Substance: METOPROLOL
     Dosage: UNK
  8. METOPROLOL [Suspect]
     Active Substance: METOPROLOL
     Dosage: UNK
  9. DILTIAZEM [Concomitant]
     Active Substance: DILTIAZEM
  10. DILTIAZEM [Concomitant]
     Active Substance: DILTIAZEM
     Route: 065
  11. GLIPIZIDE [Concomitant]
     Active Substance: GLIPIZIDE
  12. GLIPIZIDE [Concomitant]
     Active Substance: GLIPIZIDE
     Route: 065
  13. LASIX [Concomitant]
     Active Substance: FUROSEMIDE
  14. LASIX [Concomitant]
     Active Substance: FUROSEMIDE
     Route: 065
  15. LISINOPRIL [Concomitant]
     Active Substance: LISINOPRIL
  16. LISINOPRIL [Concomitant]
     Active Substance: LISINOPRIL
     Route: 065

REACTIONS (3)
  - Cardiac failure [Unknown]
  - Diabetes mellitus [Unknown]
  - Confusional state [Unknown]
